FAERS Safety Report 18138040 (Version 2)
Quarter: 2020Q3

REPORT INFORMATION
  Report Type: Spontaneous
  Country: AU (occurrence: AU)
  Receive Date: 20200812
  Receipt Date: 20200902
  Transmission Date: 20201103
  Serious: Yes (Other)
  Sender: FDA-Public Use
  Company Number: AU-ABBVIE-20K-008-3519327-00

PATIENT
  Age: 69 Year
  Sex: Male

DRUGS (5)
  1. BICALUTAMIDE. [Suspect]
     Active Substance: BICALUTAMIDE
     Indication: PROSTATE CANCER
     Route: 065
  2. LEUPRORELIN ACETATE [Suspect]
     Active Substance: LEUPROLIDE ACETATE
     Indication: PROSTATE CANCER
     Route: 030
  3. ENZALUTAMIDE [Suspect]
     Active Substance: ENZALUTAMIDE
     Indication: METASTATIC NEOPLASM
  4. ENZALUTAMIDE [Suspect]
     Active Substance: ENZALUTAMIDE
     Indication: PROSTATE CANCER
     Route: 065
  5. BICALUTAMIDE. [Suspect]
     Active Substance: BICALUTAMIDE
     Route: 065

REACTIONS (14)
  - Blood alkaline phosphatase decreased [Unknown]
  - Urethral stenosis [Unknown]
  - Prostatic specific antigen increased [Unknown]
  - Nocturia [Unknown]
  - Ureteric stenosis [Not Recovered/Not Resolved]
  - Metastases to penis [Not Recovered/Not Resolved]
  - Hydronephrosis [Not Recovered/Not Resolved]
  - Testicular atrophy [Unknown]
  - Urge incontinence [Unknown]
  - Micturition urgency [Unknown]
  - Dysuria [Unknown]
  - Malignant neoplasm progression [Not Recovered/Not Resolved]
  - Metastases to bone [Not Recovered/Not Resolved]
  - Renal impairment [Not Recovered/Not Resolved]
